FAERS Safety Report 21106663 (Version 1)
Quarter: 2022Q3

REPORT INFORMATION
  Report Type: Spontaneous
  Country: US (occurrence: US)
  Receive Date: 20220720
  Receipt Date: 20220720
  Transmission Date: 20221026
  Serious: Yes (Disabling, Other)
  Sender: FDA-Public Use
  Company Number: US-SA-SAC20220720000388

PATIENT
  Age: 59 Year
  Sex: Female

DRUGS (1)
  1. DUPIXENT [Suspect]
     Active Substance: DUPILUMAB
     Indication: Dermatitis atopic
     Dosage: UNK
     Route: 058
     Dates: start: 20220205

REACTIONS (9)
  - Bipolar disorder [Not Recovered/Not Resolved]
  - Blister [Not Recovered/Not Resolved]
  - Paraesthesia [Not Recovered/Not Resolved]
  - Headache [Not Recovered/Not Resolved]
  - Back disorder [Not Recovered/Not Resolved]
  - Impaired quality of life [Not Recovered/Not Resolved]
  - Swelling [Not Recovered/Not Resolved]
  - Pruritus [Not Recovered/Not Resolved]
  - Rash [Not Recovered/Not Resolved]
